FAERS Safety Report 5690441-7 (Version None)
Quarter: 2008Q1

REPORT INFORMATION
  Report Type: 
  Country: None (occurrence: None)
  Receive Date: 20080331
  Receipt Date: 20080331
  Transmission Date: 20080703
  Serious: Yes (Hospitalization)
  Sender: FDA-Public Use
  Company Number: None

PATIENT
  Age: 75 Year
  Sex: Male

DRUGS (2)
  1. WARFARIN SODIUM [Suspect]
     Indication: ATRIAL FIBRILLATION
     Dosage: 5MG  EVERY DAY  PO
     Route: 048
     Dates: start: 20071123, end: 20080229
  2. WARFARIN SODIUM [Suspect]
     Indication: PULMONARY EMBOLISM
     Dosage: 5MG  EVERY DAY  PO
     Route: 048
     Dates: start: 20071123, end: 20080229

REACTIONS (6)
  - EPISTAXIS [None]
  - GASTRIC HAEMORRHAGE [None]
  - HAEMATURIA [None]
  - HAEMORRHAGE [None]
  - INTERNATIONAL NORMALISED RATIO ABNORMAL [None]
  - PROTHROMBIN LEVEL INCREASED [None]
